FAERS Safety Report 4336073-4 (Version None)
Quarter: 2004Q1

REPORT INFORMATION
  Report Type: 
  Country: None (occurrence: None)
  Receive Date: 20040329
  Receipt Date: 20040105
  Transmission Date: 20041129
  Serious: No
  Sender: FDA-Public Use
  Company Number: USA040155801

PATIENT
  Age: 7 Year
  Sex: Male
  Weight: 24 kg

DRUGS (2)
  1. STRATTERA [Suspect]
     Dosage: 40 MG/IN THE MORNING
     Dates: start: 20031201
  2. ZYRTEC [Concomitant]

REACTIONS (4)
  - FEELING ABNORMAL [None]
  - PRESCRIBED OVERDOSE [None]
  - RETCHING [None]
  - VOMITING [None]
